FAERS Safety Report 4843286-1 (Version None)
Quarter: 2005Q4

REPORT INFORMATION
  Report Type: 
  Country: None (occurrence: None)
  Receive Date: 20051201
  Receipt Date: 20050927
  Transmission Date: 20060501
  Serious: Yes (Death)
  Sender: FDA-Public Use
  Company Number: JP-MERCK-0509USA04325

PATIENT
  Age: 61 Year
  Sex: Male
  Weight: 50 kg

DRUGS (9)
  1. PRIMAXIN [Suspect]
     Indication: PNEUMONIA
     Route: 042
     Dates: start: 20050803, end: 20050812
  2. FLUOROURACIL [Concomitant]
     Indication: OESOPHAGEAL CARCINOMA
     Route: 042
     Dates: start: 20050804, end: 20050804
  3. BRIPLATIN [Concomitant]
     Indication: OESOPHAGEAL CARCINOMA
     Route: 042
     Dates: start: 20050804, end: 20050804
  4. ZANTAC [Concomitant]
     Route: 065
  5. [THERAPY UNSPECIFIED] [Concomitant]
     Indication: REFLUX OESOPHAGITIS
     Route: 048
     Dates: start: 20050711, end: 20050928
  6. ALLOID G [Concomitant]
     Indication: REFLUX OESOPHAGITIS
     Route: 048
     Dates: start: 20050711, end: 20050928
  7. TAKEPRON [Concomitant]
     Indication: REFLUX OESOPHAGITIS
     Route: 048
     Dates: start: 20050711, end: 20050928
  8. PEPCID [Concomitant]
     Indication: REFLUX OESOPHAGITIS
     Route: 041
     Dates: start: 20050804, end: 20050913
  9. SOSEGON [Concomitant]
     Indication: PAIN
     Route: 042
     Dates: start: 20050805, end: 20050930

REACTIONS (2)
  - DRUG ERUPTION [None]
  - SEPTIC SHOCK [None]
